FAERS Safety Report 15571636 (Version 2)
Quarter: 2019Q4

REPORT INFORMATION
  Report Type: Spontaneous
  Country: PH (occurrence: PH)
  Receive Date: 20181031
  Receipt Date: 20191121
  Transmission Date: 20200122
  Serious: Yes (Hospitalization)
  Sender: FDA-Public Use
  Company Number: PH-MYLANLABS-2018M1081878

PATIENT
  Age: 36 Year
  Sex: Female

DRUGS (15)
  1. RIFAMPICIN [Concomitant]
     Active Substance: RIFAMPIN
     Indication: PULMONARY TUBERCULOSIS
     Route: 065
  2. LINEZOLID. [Suspect]
     Active Substance: LINEZOLID
     Indication: INFECTIVE ANEURYSM
     Dosage: UNK
     Route: 042
  3. ETHAMBUTOL [Concomitant]
     Active Substance: ETHAMBUTOL HYDROCHLORIDE
     Indication: PULMONARY TUBERCULOSIS
     Route: 065
  4. TRAMADOL. [Interacting]
     Active Substance: TRAMADOL
     Indication: PNEUMONIA
     Route: 065
  5. VANCOMYCIN [Concomitant]
     Active Substance: VANCOMYCIN
     Indication: PNEUMONIA
     Route: 065
  6. VANCOMYCIN [Concomitant]
     Active Substance: VANCOMYCIN
     Indication: INFECTIVE ANEURYSM
  7. PIPERACILLIN AND TAZOBACTAM [Concomitant]
     Active Substance: PIPERACILLIN SODIUM\TAZOBACTAM SODIUM
     Indication: PNEUMONIA
     Route: 065
  8. TRAMADOL. [Interacting]
     Active Substance: TRAMADOL
     Indication: PROCEDURAL PAIN
  9. ISONIAZID. [Interacting]
     Active Substance: ISONIAZID
     Indication: PNEUMONIA
  10. ISONIAZID. [Interacting]
     Active Substance: ISONIAZID
     Indication: INFECTIVE ANEURYSM
  11. LINEZOLID. [Interacting]
     Active Substance: LINEZOLID
     Indication: PNEUMONIA
  12. TRAMADOL. [Interacting]
     Active Substance: TRAMADOL
     Indication: INFECTIVE ANEURYSM
  13. ISONIAZID. [Interacting]
     Active Substance: ISONIAZID
     Indication: PULMONARY TUBERCULOSIS
     Route: 065
  14. PIPERACILLIN AND TAZOBACTAM [Concomitant]
     Active Substance: PIPERACILLIN SODIUM\TAZOBACTAM SODIUM
     Indication: INFECTIVE ANEURYSM
  15. PYRAZINAMIDE. [Concomitant]
     Active Substance: PYRAZINAMIDE
     Indication: PULMONARY TUBERCULOSIS
     Route: 065

REACTIONS (3)
  - Serotonin syndrome [Recovering/Resolving]
  - Rhabdomyolysis [Recovering/Resolving]
  - Drug interaction [Recovering/Resolving]
